FAERS Safety Report 26118049 (Version 2)
Quarter: 2025Q4

REPORT INFORMATION
  Report Type: Spontaneous
  Country: EU (occurrence: EU)
  Receive Date: 20251203
  Receipt Date: 20251208
  Transmission Date: 20260117
  Serious: Yes (Death, Other)
  Sender: GILEAD
  Company Number: EU-GILEAD-2025-0739247

PATIENT
  Age: 62 Year
  Sex: Female

DRUGS (1)
  1. YESCARTA [Suspect]
     Active Substance: AXICABTAGENE CILOLEUCEL
     Indication: Diffuse large B-cell lymphoma
     Dosage: UNK
     Route: 065
     Dates: start: 20240503

REACTIONS (1)
  - Death [Fatal]

NARRATIVE: CASE EVENT DATE: 20240718
